FAERS Safety Report 6667198-6 (Version None)
Quarter: 2010Q2

REPORT INFORMATION
  Report Type: 
  Country: None (occurrence: None)
  Receive Date: 20100401
  Receipt Date: 20100401
  Transmission Date: 20101027
  Serious: Yes (Life-Threatening)
  Sender: FDA-Public Use
  Company Number: None

PATIENT
  Sex: Male
  Weight: 81.1939 kg

DRUGS (6)
  1. DIVALPROEX EXTENDED-RELEASE [Suspect]
     Indication: CONVULSION
     Dosage: 1000 MG BID PO
     Route: 048
     Dates: start: 20091231, end: 20100209
  2. RISPERIDONE [Concomitant]
  3. TRIHEXYPHENIDYL HCL [Concomitant]
  4. ASPIRIN [Concomitant]
  5. NIACIN [Concomitant]
  6. EFFEXOR XR [Concomitant]

REACTIONS (3)
  - HEART RATE INCREASED [None]
  - PANCREATITIS [None]
  - REFUSAL OF TREATMENT BY PATIENT [None]
